FAERS Safety Report 19396225 (Version 1)
Quarter: 2021Q2

REPORT INFORMATION
  Report Type: Spontaneous
  Country: US (occurrence: US)
  Receive Date: 20210609
  Receipt Date: 20210609
  Transmission Date: 20210717
  Serious: No
  Sender: FDA-Public Use
  Company Number: US-SA-2021SA190377

PATIENT
  Sex: Male

DRUGS (4)
  1. DOXYCYCLINE. [Concomitant]
     Active Substance: DOXYCYCLINE
  2. CEREZYME [Concomitant]
     Active Substance: IMIGLUCERASE
  3. CERDELGA [Suspect]
     Active Substance: ELIGLUSTAT
     Indication: FABRY^S DISEASE
     Dosage: 84 MG, BID
     Route: 048
     Dates: start: 20180420
  4. CERDELGA [Suspect]
     Active Substance: ELIGLUSTAT
     Dosage: 84 MG, BID
     Route: 048

REACTIONS (3)
  - Dyspepsia [Unknown]
  - Product use in unapproved indication [Unknown]
  - Product dose omission in error [Unknown]
